FAERS Safety Report 8629347 (Version 3)
Quarter: 2012Q4

REPORT INFORMATION
  Report Type: 
  Country: US (occurrence: US)
  Receive Date: 20120622
  Receipt Date: 20120903
  Transmission Date: 20130627
  Serious: Yes (Hospitalization)
  Sender: FDA-Public Use
  Company Number: US-BIOGENIDEC-2012BI021523

PATIENT
  Age: 53 Year

DRUGS (20)
  1. TYSABRI [Suspect]
     Indication: MULTIPLE SCLEROSIS
     Route: 042
     Dates: start: 20120322
  2. AMBIEN [Concomitant]
     Route: 048
  3. ABILIFY [Concomitant]
     Route: 048
  4. VITAMIN C [Concomitant]
     Route: 048
  5. RESTORIL [Concomitant]
     Route: 048
  6. NEURONTIN [Concomitant]
     Route: 048
  7. DETROL LA [Concomitant]
     Route: 048
  8. CYMBALTA [Concomitant]
     Route: 048
  9. CARAFATE [Concomitant]
     Route: 048
  10. LIORESAL [Concomitant]
     Route: 048
  11. SYMMETREL [Concomitant]
     Route: 048
  12. NORCO [Concomitant]
     Route: 048
  13. ATIVAN [Concomitant]
  14. MACRODANTIN [Concomitant]
     Route: 048
  15. NIFEREX-150 ORAL [Concomitant]
     Route: 048
  16. THERA TAB [Concomitant]
     Route: 048
  17. PRILOSEC [Concomitant]
     Route: 048
  18. DITROPAN [Concomitant]
     Route: 048
  19. DULCOLAX [Concomitant]
  20. COLACE [Concomitant]
     Route: 048

REACTIONS (6)
  - Decubitus ulcer [Unknown]
  - Dyspnoea [Unknown]
  - Constipation [Recovered/Resolved]
  - Visual impairment [Unknown]
  - Sepsis [Recovered/Resolved]
  - Urinary tract infection [Recovered/Resolved]
